FAERS Safety Report 6158249-6 (Version None)
Quarter: 2009Q2

REPORT INFORMATION
  Report Type: 
  Country: None (occurrence: None)
  Receive Date: 20090413
  Receipt Date: 20090413
  Transmission Date: 20091009
  Serious: Yes (Other)
  Sender: FDA-Public Use
  Company Number: None

PATIENT
  Sex: Female
  Weight: 77.1115 kg

DRUGS (1)
  1. PROAIR HFA [Suspect]
     Indication: ASTHMA
     Dosage: ONE PUFF
     Dates: start: 20090413, end: 20090413

REACTIONS (6)
  - ABDOMINAL DISCOMFORT [None]
  - ASTHMA [None]
  - CONDITION AGGRAVATED [None]
  - HEADACHE [None]
  - PRODUCT QUALITY ISSUE [None]
  - RESPIRATORY TRACT IRRITATION [None]
